FAERS Safety Report 13838077 (Version 4)
Quarter: 2018Q1

REPORT INFORMATION
  Report Type: Spontaneous
  Country: JP (occurrence: JP)
  Receive Date: 20170807
  Receipt Date: 20180207
  Transmission Date: 20180508
  Serious: Yes (Death, Hospitalization, Other)
  Sender: FDA-Public Use
  Company Number: JP-009507513-1704JPN002054J

PATIENT
  Age: 74 Year
  Sex: Male
  Weight: 47 kg

DRUGS (6)
  1. CRAVIT [Concomitant]
     Active Substance: LEVOFLOXACIN
     Indication: INFECTION PROPHYLAXIS
     Dosage: 500 MG, QD
     Route: 048
     Dates: start: 20170406, end: 20170413
  2. MEDICON [Concomitant]
     Active Substance: DEXTROMETHORPHAN HYDROBROMIDE
     Indication: SQUAMOUS CELL CARCINOMA OF LUNG
     Dosage: 30 MG, TID
     Route: 048
     Dates: start: 20170406, end: 20170427
  3. REBAMIPIDE [Concomitant]
     Active Substance: REBAMIPIDE
     Indication: PROPHYLAXIS
     Dosage: 100 MG, PRN
     Route: 048
     Dates: start: 20170309
  4. KEYTRUDA [Suspect]
     Active Substance: PEMBROLIZUMAB
     Indication: SQUAMOUS CELL CARCINOMA OF LUNG
     Dosage: 200 MG, Q3W
     Route: 041
     Dates: start: 20170309, end: 20170428
  5. LOXOPROFEN [Concomitant]
     Active Substance: LOXOPROFEN
     Indication: SQUAMOUS CELL CARCINOMA OF LUNG
     Dosage: 60 MG, PRN
     Route: 048
     Dates: start: 20170309
  6. COCARL [Concomitant]
     Active Substance: ACETAMINOPHEN
     Indication: SQUAMOUS CELL CARCINOMA OF LUNG
     Dosage: 400 MG, TID
     Route: 048
     Dates: start: 20170406, end: 20170427

REACTIONS (5)
  - Gastroenteritis radiation [Not Recovered/Not Resolved]
  - Haematuria [Recovered/Resolved]
  - Diarrhoea [Not Recovered/Not Resolved]
  - Malignant neoplasm progression [Fatal]
  - Pyrexia [Recovered/Resolved]

NARRATIVE: CASE EVENT DATE: 20170310
